FAERS Safety Report 11074088 (Version 1)
Quarter: 2015Q2

REPORT INFORMATION
  Report Type: Spontaneous
  Country: US (occurrence: None)
  Receive Date: 20150428
  Receipt Date: 20150428
  Transmission Date: 20150821
  Serious: Yes (Death)
  Sender: FDA-Public Use
  Company Number: None

PATIENT
  Age: 33 Year
  Sex: Female
  Weight: 54.43 kg

DRUGS (4)
  1. WELLBUTRIN [Concomitant]
     Active Substance: BUPROPION HYDROCHLORIDE
  2. BUPROPION HCL XL [Suspect]
     Active Substance: BUPROPION HYDROCHLORIDE
     Indication: SMOKING CESSATION THERAPY
     Dosage: 1 TABLETS BY MOUTH FOR 3 DAYS, THEM INCREASE TO 2 TABLETS DAILY?MOUTH
     Route: 048
     Dates: end: 20150311
  3. BUPROPION HCL XL [Suspect]
     Active Substance: BUPROPION HYDROCHLORIDE
     Dosage: 1 TABLETS BY MOUTH FOR 3 DAYS, THEM INCREASE TO 2 TABLETS DAILY?MOUTH
     Route: 048
     Dates: end: 20150311
  4. NAPROXYN [Concomitant]

REACTIONS (1)
  - Completed suicide [None]

NARRATIVE: CASE EVENT DATE: 20150311
